FAERS Safety Report 8212420-8 (Version None)
Quarter: 2012Q1

REPORT INFORMATION
  Report Type: 
  Country: None (occurrence: None)
  Receive Date: 20120315
  Receipt Date: 20120309
  Transmission Date: 20120608
  Serious: Yes (Hospitalization)
  Sender: FDA-Public Use
  Company Number: US-BAYER-200935624NA

PATIENT
  Age: 35 Year
  Sex: Female

DRUGS (4)
  1. YAZ [Suspect]
     Indication: CONTRACEPTION
     Route: 048
     Dates: start: 20071101, end: 20081001
  2. LEXAPRO [Concomitant]
     Indication: ANXIETY
     Dosage: 10 MG, UNK
     Route: 048
  3. SIMVASTATIN [Concomitant]
     Dosage: UNK
     Dates: start: 20080701
  4. NAPROXEN [Concomitant]
     Indication: MIGRAINE
     Dosage: 500 MG, UNK
     Route: 048

REACTIONS (2)
  - PULMONARY EMBOLISM [None]
  - PAIN [None]
